FAERS Safety Report 5404801-2 (Version None)
Quarter: 2007Q3

REPORT INFORMATION
  Report Type: 
  Country: None (occurrence: None)
  Receive Date: 20070803
  Receipt Date: 20070730
  Transmission Date: 20080115
  Serious: Yes (Hospitalization)
  Sender: FDA-Public Use
  Company Number: HQWYE032031MAY05

PATIENT
  Age: 68 Year
  Sex: Female

DRUGS (7)
  1. VENLAFAXINE HCL [Interacting]
     Route: 048
     Dates: start: 20050421, end: 20050423
  2. VENLAFAXINE HCL [Interacting]
     Route: 048
     Dates: start: 20050424, end: 20050424
  3. ASPIRIN [Concomitant]
     Indication: ANALGESIA
     Route: 048
  4. METOPROLOL TARTRATE [Interacting]
     Route: 048
  5. CIPRALEX [Suspect]
     Dates: start: 20050412, end: 20050420
  6. TEGRETOL [Interacting]
     Route: 048
     Dates: start: 20050405, end: 20050419
  7. TEGRETOL [Interacting]
     Route: 048
     Dates: start: 20050420, end: 20050424

REACTIONS (3)
  - ANTIDEPRESSANT DRUG LEVEL INCREASED [None]
  - DRUG INTERACTION [None]
  - HYPONATRAEMIA [None]
